FAERS Safety Report 11789837 (Version 1)
Quarter: 2015Q4

REPORT INFORMATION
  Report Type: Spontaneous
  Country: US (occurrence: US)
  Receive Date: 20151201
  Receipt Date: 20151201
  Transmission Date: 20160305
  Serious: No
  Sender: FDA-Public Use
  Company Number: US-ASTRAZENECA-2015SF18192

PATIENT
  Sex: Female

DRUGS (1)
  1. PRILOSEC OTC [Suspect]
     Active Substance: OMEPRAZOLE MAGNESIUM
     Indication: GASTRIC DISORDER
     Route: 048
     Dates: start: 20151118

REACTIONS (3)
  - Discomfort [Not Recovered/Not Resolved]
  - Hyperchlorhydria [Not Recovered/Not Resolved]
  - Abdominal pain upper [Not Recovered/Not Resolved]
